FAERS Safety Report 8978349 (Version 1)
Quarter: 2012Q4

REPORT INFORMATION
  Report Type: 
  Country: US (occurrence: US)
  Receive Date: 20121221
  Receipt Date: 20121221
  Transmission Date: 20130627
  Serious: Yes (Hospitalization)
  Sender: FDA-Public Use
  Company Number: US-009507513-1212USA006330

PATIENT
  Age: 77 Year
  Sex: Male

DRUGS (2)
  1. FOSAMAX [Suspect]
     Indication: BONE DENSITY INCREASED
     Dosage: 70 mg, qw
     Route: 048
  2. ASPIRIN [Concomitant]

REACTIONS (2)
  - Haemoptysis [Recovering/Resolving]
  - Accidental overdose [Unknown]
